FAERS Safety Report 8214152-9 (Version None)
Quarter: 2012Q1

REPORT INFORMATION
  Report Type: 
  Country: None (occurrence: None)
  Receive Date: 20120316
  Receipt Date: 20120306
  Transmission Date: 20120608
  Serious: Yes (Hospitalization)
  Sender: FDA-Public Use
  Company Number: US-CELGENEUS-163-AB007-11061397

PATIENT
  Sex: Male
  Weight: 109 kg

DRUGS (26)
  1. ALOXI [Concomitant]
     Indication: PROPHYLAXIS
     Route: 041
     Dates: start: 20110414
  2. VERSED [Concomitant]
     Route: 041
     Dates: start: 20110601, end: 20110601
  3. CLONAZEPAM [Concomitant]
     Indication: SLEEP DISORDER
     Dosage: .5 MILLIGRAM
     Route: 048
     Dates: start: 20090101
  4. GEMZAR [Suspect]
     Dosage: 1000 MILLIGRAM/SQ. METER
     Route: 041
     Dates: start: 20110414, end: 20110524
  5. CIPROFLOXACIN HYDROCHLORIDE [Concomitant]
     Indication: INFECTION PROPHYLAXIS
     Route: 048
     Dates: start: 20110520, end: 20110527
  6. ASPIRIN [Concomitant]
     Indication: PROPHYLAXIS
     Route: 048
     Dates: start: 20050101
  7. LEVEMIR [Concomitant]
     Dosage: 100 UNITS
     Route: 058
     Dates: start: 20110320
  8. NOVOLOG [Concomitant]
     Route: 058
     Dates: start: 20110316
  9. KLONOPIN [Concomitant]
     Indication: PROPHYLAXIS
     Route: 048
     Dates: start: 20090101
  10. DURAGESIC-100 [Concomitant]
     Indication: PROPHYLAXIS
     Route: 061
     Dates: start: 20110428
  11. DURAGESIC-100 [Concomitant]
     Route: 061
     Dates: start: 20110406
  12. DEMEROL [Concomitant]
     Route: 041
     Dates: start: 20110601, end: 20110601
  13. ONDANSETRON [Concomitant]
     Indication: NAUSEA
     Dosage: 24 MILLIGRAM
     Route: 048
     Dates: start: 20110320
  14. SIMETHICONE [Concomitant]
     Indication: PROPHYLAXIS
     Route: 048
     Dates: start: 20110314
  15. SODIUM CHLORIDE [Concomitant]
     Indication: DEHYDRATION
     Route: 041
     Dates: start: 20110531
  16. PHENERGAN [Concomitant]
     Indication: PROPHYLAXIS
     Route: 048
     Dates: start: 20110314
  17. SODIUM CHLORIDE [Concomitant]
     Route: 041
     Dates: start: 20110520, end: 20110520
  18. ABRAXANE [Suspect]
     Dosage: 125 MILLIGRAM/SQ. METER
     Route: 041
     Dates: start: 20110414, end: 20110524
  19. OXYCODONE HCL [Concomitant]
     Indication: PROPHYLAXIS
     Route: 048
     Dates: start: 20110406
  20. DUCOSATE SODIUM [Concomitant]
     Indication: CONSTIPATION
     Dosage: 100 MILLIGRAM
     Route: 048
     Dates: start: 20110314
  21. ACETAMINOPHEN AND OXYCODONE HCL [Concomitant]
     Indication: ABDOMINAL PAIN
     Dosage: 325/10
     Route: 048
     Dates: start: 20110406
  22. VITAMIN D [Concomitant]
     Indication: VITAMIN SUPPLEMENTATION
     Route: 048
     Dates: start: 20090101
  23. DECADRON [Concomitant]
     Indication: PROPHYLAXIS
     Route: 041
     Dates: start: 20110414
  24. COLACE [Concomitant]
     Indication: CONSTIPATION
     Route: 048
     Dates: start: 20110314
  25. FENTANYL-100 [Concomitant]
     Indication: ABDOMINAL PAIN
     Dosage: 50 MICROGRAM
     Route: 062
     Dates: start: 20110406
  26. CIPROFLOXACIN HYDROCHLORIDE [Concomitant]
     Indication: URINARY TRACT INFECTION
     Route: 048
     Dates: start: 20110510, end: 20110517

REACTIONS (2)
  - DEHYDRATION [None]
  - UPPER GASTROINTESTINAL HAEMORRHAGE [None]
